FAERS Safety Report 5410613-6 (Version None)
Quarter: 2007Q3

REPORT INFORMATION
  Report Type: 
  Country: None (occurrence: None)
  Receive Date: 20070810
  Receipt Date: 20070410
  Transmission Date: 20080115
  Serious: No
  Sender: FDA-Public Use
  Company Number: A0647491A

PATIENT
  Age: 39 Year
  Sex: Male

DRUGS (1)
  1. PAXIL [Suspect]
     Indication: DEPRESSION

REACTIONS (6)
  - ADVERSE EVENT [None]
  - AGITATION [None]
  - AKATHISIA [None]
  - DISCOMFORT [None]
  - IMPRISONMENT [None]
  - IMPULSE-CONTROL DISORDER [None]
